FAERS Safety Report 7503591-7 (Version None)
Quarter: 2011Q2

REPORT INFORMATION
  Report Type: 
  Country: None (occurrence: None)
  Receive Date: 20110524
  Receipt Date: 20110524
  Transmission Date: 20111010
  Serious: Yes (Other)
  Sender: FDA-Public Use
  Company Number: None

PATIENT
  Age: 36 Year
  Sex: Female
  Weight: 136.0791 kg

DRUGS (1)
  1. HYDROXYZINE [Suspect]

REACTIONS (1)
  - SOMNOLENCE [None]
